FAERS Safety Report 8197683-X (Version None)
Quarter: 2012Q1

REPORT INFORMATION
  Report Type: 
  Country: None (occurrence: None)
  Receive Date: 20120307
  Receipt Date: 20120227
  Transmission Date: 20120608
  Serious: No
  Sender: FDA-Public Use
  Company Number: 2012SP011015

PATIENT
  Age: 51 Year
  Sex: Female

DRUGS (1)
  1. SAPHRIS [Suspect]
     Indication: ANXIETY
     Dosage: 5 MG

REACTIONS (2)
  - SWOLLEN TONGUE [None]
  - OFF LABEL USE [None]
